FAERS Safety Report 6357772-9 (Version None)
Quarter: 2009Q3

REPORT INFORMATION
  Report Type: 
  Country: None (occurrence: None)
  Receive Date: 20090911
  Receipt Date: 20090831
  Transmission Date: 20100115
  Serious: Yes (Hospitalization)
  Sender: FDA-Public Use
  Company Number: SE-000703

PATIENT
  Sex: Female

DRUGS (11)
  1. MINIRIN [Suspect]
     Indication: NOCTURIA
     Dosage: (0.1 MG ORAL)
     Route: 048
     Dates: start: 20090115
  2. DETRUSITOL [Concomitant]
  3. OMEPRAZOLE [Concomitant]
  4. TRYPTIZOL [Concomitant]
  5. STESOLID [Concomitant]
  6. ACETAMINOPHEN [Concomitant]
  7. STILNOCT [Concomitant]
  8. REMERON [Concomitant]
  9. TRIOBE [Concomitant]
  10. ESTRADIOL [Concomitant]
  11. FUROSEMIDE [Concomitant]

REACTIONS (17)
  - ALANINE AMINOTRANSFERASE INCREASED [None]
  - ASPARTATE AMINOTRANSFERASE INCREASED [None]
  - BACTERIAL SEPSIS [None]
  - BLOOD CREATININE INCREASED [None]
  - BLOOD PRESSURE DECREASED [None]
  - DEPRESSED LEVEL OF CONSCIOUSNESS [None]
  - DISORIENTATION [None]
  - EPILEPSY [None]
  - HAEMOGLOBIN DECREASED [None]
  - HYPERPYREXIA [None]
  - HYPOKALAEMIA [None]
  - LEUKOCYTOSIS [None]
  - LOSS OF CONSCIOUSNESS [None]
  - OXYGEN SATURATION DECREASED [None]
  - SEPTIC SHOCK [None]
  - SINUS TACHYCARDIA [None]
  - TIC [None]
